FAERS Safety Report 13160665 (Version 1)
Quarter: 2017Q1

REPORT INFORMATION
  Report Type: Spontaneous
  Country: US (occurrence: US)
  Receive Date: 20170129
  Receipt Date: 20170129
  Transmission Date: 20170428
  Serious: No
  Sender: FDA-Public Use
  Company Number: US-AMGEN-USASP2017011610

PATIENT
  Sex: Male

DRUGS (10)
  1. WARFARIN [Concomitant]
     Active Substance: WARFARIN
     Dosage: 5 MG, UNK
  2. ENBREL [Suspect]
     Active Substance: ETANERCEPT
     Indication: RHEUMATOID ARTHRITIS
     Dosage: 50 MG, UNK
     Route: 065
     Dates: start: 20140311
  3. AMOXIL [Concomitant]
     Active Substance: AMOXICILLIN
     Dosage: UNK
  4. DILTIAZEM. [Concomitant]
     Active Substance: DILTIAZEM
     Dosage: 180 MG, UNK
  5. FUROSEMIDE. [Concomitant]
     Active Substance: FUROSEMIDE
     Dosage: 40 MG, UNK
  6. DILTIAZEM HCL [Concomitant]
     Active Substance: DILTIAZEM HYDROCHLORIDE
     Dosage: UNK
  7. ALPRAZOLAM. [Concomitant]
     Active Substance: ALPRAZOLAM
     Dosage: 0.5 MG, UNK
  8. ARAVA [Concomitant]
     Active Substance: LEFLUNOMIDE
     Dosage: 10 MG, UNK
  9. AMOXICILLIN. [Concomitant]
     Active Substance: AMOXICILLIN
     Dosage: UNK
  10. RAMIPRIL. [Concomitant]
     Active Substance: RAMIPRIL
     Dosage: 10 MG, UNK

REACTIONS (1)
  - Hospice care [Not Recovered/Not Resolved]
